FAERS Safety Report 17370631 (Version 1)
Quarter: 2020Q1

REPORT INFORMATION
  Report Type: Spontaneous
  Country: US (occurrence: US)
  Receive Date: 20200205
  Receipt Date: 20200205
  Transmission Date: 20200409
  Serious: Yes (Hospitalization, Other)
  Sender: FDA-Public Use
  Company Number: US-PCCINC-2020-PEL-000042

PATIENT

DRUGS (2)
  1. MITIGO [Suspect]
     Active Substance: MORPHINE SULFATE
     Indication: PAIN MANAGEMENT
     Dosage: 500 MILLIGRAM
     Route: 037
  2. BUPIVACAINE. [Suspect]
     Active Substance: BUPIVACAINE
     Indication: PAIN MANAGEMENT
     Dosage: 1750 MILLIGRAM
     Route: 037

REACTIONS (9)
  - Respiratory depression [Unknown]
  - Toxicity to various agents [Recovered/Resolved]
  - Peripheral sensory neuropathy [Recovered/Resolved]
  - Sensory loss [Recovered/Resolved]
  - Device malfunction [Unknown]
  - Status epilepticus [Recovered/Resolved]
  - Hypotension [Recovered/Resolved]
  - Peripheral motor neuropathy [Recovered/Resolved]
  - Encephalopathy [Unknown]
